FAERS Safety Report 24044466 (Version 2)
Quarter: 2024Q4

REPORT INFORMATION
  Report Type: Spontaneous
  Country: US (occurrence: US)
  Receive Date: 20240703
  Receipt Date: 20241015
  Transmission Date: 20250115
  Serious: Yes (Hospitalization, Other)
  Sender: ENDO
  Company Number: US-ENDO USA, INC.-2024-002749

PATIENT
  Age: 65 Year
  Sex: Male
  Weight: 79.365 kg

DRUGS (8)
  1. XIAFLEX [Suspect]
     Active Substance: COLLAGENASE CLOSTRIDIUM HISTOLYTICUM
     Indication: Peyronie^s disease
     Dosage: 0.58 MILLIGRAM, TWICE EVERY 6 WEEKS (CYCLE 4, INJECTION 2)
     Route: 026
     Dates: start: 20240523
  2. XIAFLEX [Suspect]
     Active Substance: COLLAGENASE CLOSTRIDIUM HISTOLYTICUM
     Dosage: 0.58 MILLIGRAM, TWICE EVERY 6 WEEKS (CYCLE 4, INJECTION 1)
     Route: 026
     Dates: start: 2024
  3. XIAFLEX [Suspect]
     Active Substance: COLLAGENASE CLOSTRIDIUM HISTOLYTICUM
     Dosage: 0.58 MILLIGRAM, TWICE EVERY 6 WEEKS (CYCLE 3, INJECTION 2)
     Route: 026
  4. XIAFLEX [Suspect]
     Active Substance: COLLAGENASE CLOSTRIDIUM HISTOLYTICUM
     Dosage: 0.58 MILLIGRAM, TWICE EVERY 6 WEEKS (CYCLE 3, INJECTION 1)
     Route: 026
  5. XIAFLEX [Suspect]
     Active Substance: COLLAGENASE CLOSTRIDIUM HISTOLYTICUM
     Dosage: 0.58 MILLIGRAM, TWICE EVERY 6 WEEKS (CYCLE 2, INJECTION 2)
     Route: 026
  6. XIAFLEX [Suspect]
     Active Substance: COLLAGENASE CLOSTRIDIUM HISTOLYTICUM
     Dosage: 0.58 MILLIGRAM, TWICE EVERY 6 WEEKS (CYCLE 2, INJECTION 1)
     Route: 026
  7. XIAFLEX [Suspect]
     Active Substance: COLLAGENASE CLOSTRIDIUM HISTOLYTICUM
     Dosage: 0.58 MILLIGRAM, TWICE EVERY 6 WEEKS (CYCLE 1, INJECTION 2)
     Route: 026
     Dates: start: 2023
  8. XIAFLEX [Suspect]
     Active Substance: COLLAGENASE CLOSTRIDIUM HISTOLYTICUM
     Dosage: 0.58 MILLIGRAM, TWICE EVERY 6 WEEKS (CYCLE 1, INJECTION 1)
     Route: 026
     Dates: start: 20231108

REACTIONS (2)
  - Fracture of penis [Recovering/Resolving]
  - Corpora cavernosa surgery [Recovered/Resolved]

NARRATIVE: CASE EVENT DATE: 20240501
